FAERS Safety Report 8085727-5 (Version None)
Quarter: 2012Q1

REPORT INFORMATION
  Report Type: 
  Country: None (occurrence: None)
  Receive Date: 20120128
  Receipt Date: 20110405
  Transmission Date: 20120608
  Serious: No
  Sender: FDA-Public Use
  Company Number: US-ABBOTT-11P-163-0716614-00

PATIENT
  Age: 51 Year
  Sex: Female

DRUGS (9)
  1. HYDROXYZINE PAMOATE [Concomitant]
     Indication: STRESS
  2. MIRTHYAZINE [Concomitant]
     Indication: DEPRESSION
  3. CYMBALTA [Concomitant]
     Indication: DEPRESSION
  4. HUMIRA [Suspect]
     Indication: RHEUMATOID ARTHRITIS
     Dates: start: 20110302
  5. METHOTREXATE [Concomitant]
  6. MIRTHYAZINE [Concomitant]
     Indication: POOR QUALITY SLEEP
  7. METHOTREXATE [Concomitant]
     Indication: PRODUCT USED FOR UNKNOWN INDICATION
  8. FOLIC ACID [Concomitant]
     Indication: PRODUCT USED FOR UNKNOWN INDICATION
     Dosage: IN CONJUNCTION WITH METHOTREXATE
  9. HYDROXYZINE PAMOATE [Concomitant]
     Indication: ANXIETY

REACTIONS (1)
  - INJECTION SITE PAIN [None]
